FAERS Safety Report 17842709 (Version 1)
Quarter: 2020Q2

REPORT INFORMATION
  Report Type: Spontaneous
  Country: US (occurrence: US)
  Receive Date: 20200529
  Receipt Date: 20200529
  Transmission Date: 20200714
  Serious: No
  Sender: FDA-Public Use
  Company Number: US-BAYER-2020-095593

PATIENT
  Age: 33 Year
  Sex: Female

DRUGS (1)
  1. ESTRADIOL HEMIHYDRATE [Suspect]
     Active Substance: ESTRADIOL HEMIHYDRATE
     Dosage: UNK, BIW
     Route: 062
     Dates: start: 201912, end: 2020

REACTIONS (5)
  - Anger [None]
  - Product administration interrupted [None]
  - Mood swings [None]
  - Product dispensing error [None]
  - Depressed mood [None]
